FAERS Safety Report 11991255 (Version 1)
Quarter: 2016Q1

REPORT INFORMATION
  Report Type: Spontaneous
  Country: FR (occurrence: None)
  Receive Date: 20160201
  Receipt Date: 20160201
  Transmission Date: 20160526
  Serious: No
  Sender: FDA-Public Use
  Company Number: RAP-0009-2014

PATIENT
  Age: 53 Year
  Sex: Male

DRUGS (3)
  1. IMOVANE (ZOPLICIONE) [Concomitant]
  2. CYST-HD (CYSTEAMINE) DELAYED-RELEASED CAPSULE [Suspect]
     Active Substance: CYSTEAMINE
     Indication: HUNTINGTON^S DISEASE
     Route: 048
     Dates: start: 20110711, end: 20121108
  3. FORLAX (MACROGOL) [Concomitant]

REACTIONS (1)
  - Lymphopenia [None]

NARRATIVE: CASE EVENT DATE: 20121108
